FAERS Safety Report 10476860 (Version 2)
Quarter: 2014Q4

REPORT INFORMATION
  Report Type: Report from Study
  Country: US (occurrence: US)
  Receive Date: 20140926
  Receipt Date: 20141030
  Transmission Date: 20150528
  Serious: Yes (Death, Hospitalization, Other)
  Sender: FDA-Public Use
  Company Number: US-AMGEN-USASP2014072898

PATIENT
  Age: 81 Year
  Sex: Female

DRUGS (25)
  1. TESSALON [Concomitant]
     Active Substance: BENZONATATE
     Indication: COUGH
     Dosage: 100 MG, TID AS NECESSARY
  2. CEFTIN [Concomitant]
     Active Substance: CEFUROXIME AXETIL
     Dosage: 500 MG, BID FOR 5 DAYS
  3. XALATAN [Concomitant]
     Active Substance: LATANOPROST
     Dosage: 0.005 % ONE DROP ECAH EYE NIGHTLY
  4. PROLIA [Suspect]
     Active Substance: DENOSUMAB
     Indication: OSTEOPOROSIS POSTMENOPAUSAL
     Dosage: 60 MG, SINGLE DOSE
     Route: 058
     Dates: start: 20140519
  5. ZOLOFT [Concomitant]
     Active Substance: SERTRALINE HYDROCHLORIDE
     Indication: DEPRESSION
     Dosage: 50 MG, QD EVERY MORNING
  6. DURAGESIC [Concomitant]
     Active Substance: FENTANYL
     Dosage: 25 MUG, EVERY 3 DAYS
  7. CARDIZEM [Concomitant]
     Active Substance: DILTIAZEM HYDROCHLORIDE
     Dosage: 120 MG, EVERY MORNING
  8. SYMBICORT [Concomitant]
     Active Substance: BUDESONIDE\FORMOTEROL FUMARATE DIHYDRATE
     Dosage: 160/4.5 MCG 2 PUFFS BID
  9. LIDODERM [Concomitant]
     Active Substance: LIDOCAINE
     Dosage: UNK UNK, QD
  10. EXTRA STRENGTH TYLENOL BACK PAIN [Concomitant]
     Dosage: 500 MG, Q6H AS NECESSARY
  11. TRAMADOL [Concomitant]
     Active Substance: TRAMADOL
     Dosage: 50 MG, TID AS NECESSARY
  12. MULTIVITAMIN WITH MINERALS [Concomitant]
     Active Substance: MINERALS\VITAMINS
     Dosage: 1 TABLET EVERY MORNING
  13. PROTONIX [Concomitant]
     Active Substance: PANTOPRAZOLE SODIUM
     Dosage: 40 MG, EVERY MORNING
  14. FLEXERIL [Concomitant]
     Active Substance: CYCLOBENZAPRINE HYDROCHLORIDE
     Dosage: 5 MG, TID AS NECESSARY
  15. TYLENOL ARTHRITIS PAIN [Concomitant]
     Active Substance: ACETAMINOPHEN
     Dosage: 650 TWO, BID
     Route: 048
  16. CALCIUM CARBONATE. [Concomitant]
     Active Substance: CALCIUM CARBONATE
     Dosage: 500 MG, BID
  17. ZESTRIL [Concomitant]
     Active Substance: LISINOPRIL
     Dosage: 20 MG, EVERY MORNING
  18. LASIX [Concomitant]
     Active Substance: FUROSEMIDE
     Dosage: 20 MG, EVERY MORNING
  19. COLACE [Concomitant]
     Active Substance: DOCUSATE SODIUM
     Dosage: 100 MG, BID
  20. ALBUTEROL                          /00139501/ [Concomitant]
     Active Substance: ALBUTEROL
     Indication: DYSPNOEA
     Dosage: 2 PUFFS Q4H AS NECESSARY
  21. OXYGEN. [Concomitant]
     Active Substance: OXYGEN
     Dosage: 2 L NIGHTLY AS NECESSARY DURING DAY
  22. MS CONTIN [Concomitant]
     Active Substance: MORPHINE SULFATE
     Dosage: 15 MG, Q12H
  23. BETIMOL                            /00371201/ [Concomitant]
     Dosage: 0.25 % ONE DROP EACH EYE BID
  24. CRANBERRY EXTRACT [Concomitant]
     Dosage: 500 MG, BID
  25. LORTAB [Concomitant]
     Active Substance: ACETAMINOPHEN\HYDROCODONE BITARTRATE
     Indication: PAIN
     Dosage: 10 MG, Q6H AS NECESSARY

REACTIONS (3)
  - Back pain [Unknown]
  - Chronic lymphocytic leukaemia [Fatal]
  - Metastases to bone [Unknown]
